FAERS Safety Report 5139691-9 (Version None)
Quarter: 2006Q4

REPORT INFORMATION
  Report Type: 
  Country: None (occurrence: None)
  Receive Date: 20061024
  Receipt Date: 20061006
  Transmission Date: 20070319
  Serious: Yes (Death, Life-Threatening, Hospitalization, Other)
  Sender: FDA-Public Use
  Company Number: 2002-11-2017

PATIENT
  Age: 40 Year
  Sex: Female

DRUGS (34)
  1. POSACONAZOLE [Suspect]
     Indication: FUNGAL INFECTION
     Dosage: 400 MG; BID; PO
     Route: 048
     Dates: start: 20021028, end: 20021120
  2. EFFEXOR [Concomitant]
  3. VORICONAZOLE [Concomitant]
  4. ROCEPHIN [Concomitant]
  5. CIFLOX [Concomitant]
  6. VITAMIN CAP [Concomitant]
  7. HUMAN RED BLOOD CELLS [Concomitant]
  8. PLATELETS [Concomitant]
  9. POLARAMINE [Concomitant]
  10. DAFALGAN [Concomitant]
  11. LARGACTIL [Concomitant]
  12. LEUCOMAX (GM-CSF) [Concomitant]
  13. PRIMPERAN TAB [Concomitant]
  14. RETINOL [Concomitant]
  15. AMPHOTERICIN B [Concomitant]
  16. ORACILLINE [Concomitant]
  17. PHYTOMENADIONE [Concomitant]
  18. CALCIUM FOLINATE [Concomitant]
  19. LASIX [Concomitant]
  20. IMMUNE GLOBULIN INTRAVENOUS (HUMAN) [Concomitant]
  21. LARGACTIL [Concomitant]
  22. VORICONAZOLE [Concomitant]
  23. NEUPOGEN [Concomitant]
  24. LEUCOMAX (GM-CSF) [Concomitant]
  25. VISCERALGINE [Concomitant]
  26. TRAMADOL HCL [Concomitant]
  27. ACUPAN [Concomitant]
  28. DUPHALAC [Concomitant]
  29. DEBRIDAT [Concomitant]
  30. SPASFON [Concomitant]
  31. KAYEXALATE [Concomitant]
  32. CEFIXIME CHEWABLE [Concomitant]
  33. PROCTOLOG (TRIMEBUTINE/RUSCOGENIN) [Concomitant]
  34. HEPTAMINOL HYDROCHLORIDE [Concomitant]

REACTIONS (22)
  - ASCITES [None]
  - ASPERGILLOSIS [None]
  - BLOOD DISORDER [None]
  - BLOOD PRESSURE DECREASED [None]
  - BRONCHITIS [None]
  - COMA [None]
  - CULTURE URINE POSITIVE [None]
  - CYTOLYTIC HEPATITIS [None]
  - DISEASE PROGRESSION [None]
  - ENTEROCOCCAL INFECTION [None]
  - FLUID IMBALANCE [None]
  - GENERAL PHYSICAL HEALTH DETERIORATION [None]
  - HEPATIC ENCEPHALOPATHY [None]
  - LIVER DISORDER [None]
  - NERVOUS SYSTEM DISORDER [None]
  - OEDEMA [None]
  - PAIN [None]
  - PANCYTOPENIA [None]
  - PURPURA [None]
  - PYREXIA [None]
  - RASH PAPULAR [None]
  - RENAL FAILURE [None]
